FAERS Safety Report 7532453-4 (Version None)
Quarter: 2011Q2

REPORT INFORMATION
  Report Type: 
  Country: None (occurrence: None)
  Receive Date: 20110601
  Receipt Date: 20110519
  Transmission Date: 20111010
  Serious: Yes (Hospitalization, Other)
  Sender: FDA-Public Use
  Company Number: 2011002336

PATIENT
  Age: 79 Year
  Sex: Male
  Weight: 68 kg

DRUGS (14)
  1. LISINOPRIL [Concomitant]
  2. TEKTURNA [Concomitant]
  3. AMLODIPINE BESYLATE [Concomitant]
  4. SIMVASTATIN [Concomitant]
  5. VITAMIN D [Concomitant]
  6. DOXYCYCLINE HYCLATE (DOXYCYCLINE HYCLATE) [Concomitant]
  7. ZOLPIDEM TARTRATE [Concomitant]
  8. TARCEVA [Suspect]
     Indication: NON-SMALL CELL LUNG CANCER STAGE IV
     Dosage: SEE IMAGE
     Route: 048
     Dates: start: 20110405, end: 20110420
  9. TARCEVA [Suspect]
     Indication: NON-SMALL CELL LUNG CANCER STAGE IV
     Dosage: SEE IMAGE
     Route: 048
     Dates: start: 20110301, end: 20110328
  10. TARCEVA [Suspect]
     Indication: NON-SMALL CELL LUNG CANCER STAGE IV
     Dosage: SEE IMAGE
     Route: 048
     Dates: start: 20110421, end: 20110509
  11. TARCEVA [Suspect]
     Indication: NON-SMALL CELL LUNG CANCER STAGE IV
     Dosage: SEE IMAGE
     Route: 048
     Dates: start: 20110421, end: 20110509
  12. ATENOLOL [Concomitant]
  13. CLINDAMYCIN PHOSPHATE [Concomitant]
  14. DOXAZOSIN MESYLATE (DOXAZOSIN MESYLATE) [Concomitant]

REACTIONS (8)
  - DEHYDRATION [None]
  - RASH [None]
  - WEIGHT DECREASED [None]
  - METABOLIC ACIDOSIS [None]
  - DIARRHOEA [None]
  - NEPHROGENIC ANAEMIA [None]
  - RENAL FAILURE ACUTE [None]
  - FEELING COLD [None]
